FAERS Safety Report 7710855-0 (Version None)
Quarter: 2011Q3

REPORT INFORMATION
  Report Type: 
  Country: None (occurrence: None)
  Receive Date: 20110825
  Receipt Date: 20110819
  Transmission Date: 20111222
  Serious: Yes (Hospitalization, Other)
  Sender: FDA-Public Use
  Company Number: US-ASTRAZENECA-2011SE49996

PATIENT
  Age: 61 Year
  Sex: Female

DRUGS (2)
  1. FLORAZEPAM [Concomitant]
  2. SEROQUEL [Suspect]
     Indication: SLEEP DISORDER
     Dosage: 50 MG TO 100 MG AT NIGHT
     Route: 048
     Dates: start: 20010101

REACTIONS (3)
  - CORNEAL SCAR [None]
  - EYE OPERATION [None]
  - CATARACT [None]
